FAERS Safety Report 6977367-3 (Version None)
Quarter: 2010Q3

REPORT INFORMATION
  Report Type: 
  Country: None (occurrence: None)
  Receive Date: 20100910
  Receipt Date: 20100907
  Transmission Date: 20110219
  Serious: Yes (Death, Hospitalization, Other)
  Sender: FDA-Public Use
  Company Number: JP-ROXANE LABORATORIES, INC.-2010-RO-01190RO

PATIENT
  Age: 71 Year
  Sex: Male

DRUGS (6)
  1. TERBINAFINE HCL [Suspect]
     Indication: ONYCHOMYCOSIS
     Dosage: 250 MG
     Route: 048
  2. TERBINAFINE HCL [Suspect]
     Indication: TINEA PEDIS
  3. PREDNISOLONE [Suspect]
     Indication: PYREXIA
  4. PREDNISOLONE [Suspect]
     Indication: DERMATITIS EXFOLIATIVE
     Dosage: 30 MG
  5. PREDNISOLONE [Suspect]
     Indication: DRUG RASH WITH EOSINOPHILIA AND SYSTEMIC SYMPTOMS
  6. GANCICLOVIR [Suspect]
     Indication: CYTOMEGALOVIRUS INFECTION
     Dosage: 500 MG
     Route: 042

REACTIONS (7)
  - CYTOMEGALOVIRUS INFECTION [None]
  - DRUG RASH WITH EOSINOPHILIA AND SYSTEMIC SYMPTOMS [None]
  - EPSTEIN-BARR VIRUS INFECTION [None]
  - HUMAN HERPESVIRUS 6 INFECTION [None]
  - ILEAL PERFORATION [None]
  - PERITONITIS [None]
  - PNEUMONIA [None]
